FAERS Safety Report 21033742 (Version 1)
Quarter: 2022Q3

REPORT INFORMATION
  Report Type: Spontaneous
  Country: ES (occurrence: ES)
  Receive Date: 20220701
  Receipt Date: 20220701
  Transmission Date: 20221027
  Serious: Yes (Other)
  Sender: FDA-Public Use
  Company Number: None

PATIENT
  Age: 69 Year
  Sex: Female

DRUGS (6)
  1. FUROSEMIDE [Suspect]
     Active Substance: FUROSEMIDE
     Indication: Atrial fibrillation
     Dosage: 40 MILLIGRAM, QD (40.0MG EVERY/24H))
     Route: 048
     Dates: start: 20210320, end: 20210323
  2. BISOPROLOL FUMARATE [Concomitant]
     Active Substance: BISOPROLOL FUMARATE
     Indication: Acute myocardial infarction
     Dosage: MG IRREGULAR,60 TABLETS
     Route: 048
     Dates: start: 20190109
  3. ALLOPURINOL [Concomitant]
     Active Substance: ALLOPURINOL
     Indication: Gout
     Dosage: 100 MILLIGRAM, AM (100.0 MG BREAKFAST)
     Route: 048
     Dates: start: 20180130
  4. MOMETASONA FUROATO CINFA [Concomitant]
     Indication: Rhinitis
     Dosage: 100 MICROGRAM, QD (100.0 MCG EVERY/24 H)
     Route: 045
     Dates: start: 20201014
  5. OMEPRAZOLE MAGNESIUM [Concomitant]
     Active Substance: OMEPRAZOLE MAGNESIUM
     Indication: Persistent depressive disorder
     Dosage: 20 MILLIGRAM, AM (20.0 MG BEFORE BREAKFAST)
     Route: 048
     Dates: start: 20190822
  6. TRAZODONE HYDROCHLORIDE [Concomitant]
     Active Substance: TRAZODONE HYDROCHLORIDE
     Indication: Persistent depressive disorder
     Dosage: 150 MILLIGRAM, QD (150.0 MG EVERY/24 H NIGHT)
     Route: 048
     Dates: start: 20130320

REACTIONS (1)
  - Acute kidney injury [Recovered/Resolved]

NARRATIVE: CASE EVENT DATE: 20210320
